FAERS Safety Report 7217329-4 (Version None)
Quarter: 2011Q1

REPORT INFORMATION
  Report Type: 
  Country: None (occurrence: None)
  Receive Date: 20110110
  Receipt Date: 20101229
  Transmission Date: 20110831
  Serious: Yes (Hospitalization)
  Sender: FDA-Public Use
  Company Number: JP-SANOFI-AVENTIS-2010SA078347

PATIENT
  Age: 68 Year

DRUGS (17)
  1. ELPLAT [Suspect]
     Indication: RECTAL CANCER METASTATIC
     Route: 041
     Dates: start: 20090928, end: 20090928
  2. FLUOROURACIL [Suspect]
     Route: 040
     Dates: start: 20100922, end: 20100922
  3. DEXAMETHASONE [Concomitant]
     Dates: start: 20081030, end: 20100924
  4. FLUOROURACIL [Suspect]
     Route: 041
     Dates: start: 20100924, end: 20100924
  5. AVASTIN [Suspect]
     Indication: RECTAL CANCER METASTATIC
     Route: 041
     Dates: start: 20081210, end: 20081210
  6. TOPOTECAN [Concomitant]
     Dates: start: 20081029, end: 20100922
  7. CALCIUM LEVOFOLINATE [Concomitant]
     Dates: start: 20081029, end: 20100922
  8. EBRANTIL [Concomitant]
     Dates: start: 20100712, end: 20101012
  9. FLUOROURACIL [Suspect]
     Route: 040
     Dates: start: 20081029, end: 20081029
  10. GRANISETRON HYDROCHLORIDE [Concomitant]
     Dates: start: 20081029, end: 20100922
  11. ELPLAT [Suspect]
     Route: 041
     Dates: start: 20100524, end: 20100524
  12. FLUOROURACIL [Suspect]
     Indication: RECTAL CANCER METASTATIC
     Route: 041
     Dates: start: 20081029, end: 20081029
  13. AVASTIN [Suspect]
     Route: 041
     Dates: start: 20100922, end: 20100922
  14. CALSLOT [Concomitant]
     Dates: end: 20101012
  15. DEXAMETHASONE [Concomitant]
     Dates: start: 20081029, end: 20100922
  16. VALSARTAN [Concomitant]
     Dates: end: 20101012
  17. ACETYLSALICYLIC ACID/ALUMINIUM GLYCINATE/MAGNESIUM CARBONATE [Concomitant]
     Dates: start: 20100726, end: 20101012

REACTIONS (2)
  - CONGESTIVE CARDIOMYOPATHY [None]
  - ANAPHYLACTOID REACTION [None]
